FAERS Safety Report 4727267-4 (Version None)
Quarter: 2005Q3

REPORT INFORMATION
  Report Type: 
  Country: None (occurrence: None)
  Receive Date: 20050726
  Receipt Date: 20040716
  Transmission Date: 20060218
  Serious: Yes (Hospitalization)
  Sender: FDA-Public Use
  Company Number: 04SFA0147 189

PATIENT

DRUGS (1)
  1. AGGRASTAT [Suspect]
     Indication: PROPHYLAXIS
     Dosage: INJECTION
     Dates: start: 20040601

REACTIONS (1)
  - THROMBOCYTOPENIA [None]
